FAERS Safety Report 12786903 (Version 3)
Quarter: 2017Q3

REPORT INFORMATION
  Report Type: Report from Study
  Country: US (occurrence: US)
  Receive Date: 20160927
  Receipt Date: 20170929
  Transmission Date: 20171127
  Serious: Yes (Other)
  Sender: FDA-Public Use
  Company Number: US-ALEXION PHARMACEUTICALS INC.-A201607171

PATIENT
  Sex: Female

DRUGS (1)
  1. SOLIRIS [Suspect]
     Active Substance: ECULIZUMAB
     Indication: HAEMOLYTIC URAEMIC SYNDROME
     Dosage: 1200 MG, Q2W
     Route: 042
     Dates: start: 20150602, end: 20160224

REACTIONS (7)
  - Blindness [Unknown]
  - Amenorrhoea [Not Recovered/Not Resolved]
  - Abdominal distension [Unknown]
  - Headache [Unknown]
  - Dizziness [Unknown]
  - Menstruation irregular [Unknown]
  - Fatigue [Unknown]

NARRATIVE: CASE EVENT DATE: 20160921
